FAERS Safety Report 10504283 (Version 1)
Quarter: 2014Q4

REPORT INFORMATION
  Report Type: Spontaneous
  Country: US (occurrence: US)
  Receive Date: 20141008
  Receipt Date: 20141008
  Transmission Date: 20150528
  Serious: No
  Sender: FDA-Public Use
  Company Number: US-009507513-1410USA002316

PATIENT
  Sex: Female

DRUGS (1)
  1. AFRIN [Suspect]
     Active Substance: OXYMETAZOLINE
     Indication: MIDDLE EAR EFFUSION
     Dosage: UNK UNK, TID
     Route: 045

REACTIONS (1)
  - Pruritus [Not Recovered/Not Resolved]
